FAERS Safety Report 5132332-6 (Version None)
Quarter: 2006Q4

REPORT INFORMATION
  Report Type: 
  Country: None (occurrence: None)
  Receive Date: 20061019
  Receipt Date: 20061019
  Transmission Date: 20070319
  Serious: Yes (Life-Threatening)
  Sender: FDA-Public Use
  Company Number: None

PATIENT
  Age: 35 Year
  Sex: Female
  Weight: 60.3284 kg

DRUGS (1)
  1. NUVARING [Suspect]
     Dosage: 1 RING VAGINALLY Q 21 DY, 1 WK OFF
     Route: 067

REACTIONS (1)
  - PULMONARY EMBOLISM [None]
